FAERS Safety Report 6685499-2 (Version None)
Quarter: 2010Q2

REPORT INFORMATION
  Report Type: 
  Country: None (occurrence: None)
  Receive Date: 20100419
  Receipt Date: 20100408
  Transmission Date: 20101027
  Serious: No
  Sender: FDA-Public Use
  Company Number: US-BIOGENIDEC-2009BI038260

PATIENT
  Age: 45 Year
  Sex: Female

DRUGS (1)
  1. TYSABRI [Suspect]
     Indication: MULTIPLE SCLEROSIS
     Route: 042
     Dates: start: 20070305

REACTIONS (5)
  - DENTAL IMPLANTATION [None]
  - FATIGUE [None]
  - HYPOAESTHESIA [None]
  - MEMORY IMPAIRMENT [None]
  - NEGATIVE THOUGHTS [None]
